FAERS Safety Report 6287293-3 (Version None)
Quarter: 2009Q3

REPORT INFORMATION
  Report Type: 
  Country: None (occurrence: None)
  Receive Date: 20090728
  Receipt Date: 20090724
  Transmission Date: 20100115
  Serious: Yes (Death, Other)
  Sender: FDA-Public Use
  Company Number: PHHY2009JP30804

PATIENT
  Sex: Male

DRUGS (15)
  1. SIMULECT [Suspect]
     Indication: RENAL TRANSPLANT
     Dosage: 20 MG
     Route: 042
     Dates: start: 20080916, end: 20080916
  2. SIMULECT [Suspect]
     Dosage: 20 MG
     Route: 042
     Dates: start: 20080920, end: 20080920
  3. NEORAL [Suspect]
     Indication: RENAL TRANSPLANT
     Dosage: 200 MG
     Route: 048
     Dates: start: 20080922
  4. CELLCEPT [Suspect]
     Indication: RENAL TRANSPLANT
     Dosage: 1500 MG
     Route: 048
     Dates: start: 20080916
  5. PREDNISOLONE [Suspect]
     Indication: RENAL TRANSPLANT
     Dosage: 50 MG
     Route: 048
     Dates: start: 20080919
  6. SANDIMMUNE [Concomitant]
     Indication: RENAL TRANSPLANT
     Dosage: 60 MG
     Route: 042
     Dates: start: 20080916, end: 20080922
  7. SOLU-MEDROL [Concomitant]
     Dosage: 625 G
     Route: 042
     Dates: start: 20080916
  8. SOLU-MEDROL [Concomitant]
     Dosage: 250 G
  9. SOLU-MEDROL [Concomitant]
     Dosage: 125 G
     Route: 042
     Dates: end: 20080918
  10. ZANTAC [Concomitant]
     Indication: PROPHYLAXIS
     Dosage: 2 DF
     Route: 042
     Dates: start: 20080916, end: 20080918
  11. ZANTAC [Concomitant]
     Dosage: 2 DF
     Route: 048
     Dates: start: 20080919
  12. PENTCILLIN [Concomitant]
     Indication: INFECTION PROPHYLAXIS
     Dosage: 2 G
     Route: 042
     Dates: start: 20080916, end: 20080921
  13. ALBUMIN (HUMAN) [Concomitant]
     Indication: HYPOALBUMINAEMIA
     Dosage: 100 ML
     Route: 042
     Dates: start: 20080916, end: 20080918
  14. AMLODIN OD [Concomitant]
     Indication: HYPERTENSION
     Dosage: 5 MG
     Route: 048
     Dates: start: 20080919
  15. HARNAL [Concomitant]
     Indication: BENIGN PROSTATIC HYPERPLASIA
     Dosage: 0.2 MG
     Route: 048
     Dates: start: 20080924

REACTIONS (4)
  - GRAFT LOSS [None]
  - PNEUMOCYSTIS JIROVECI PNEUMONIA [None]
  - PYREXIA [None]
  - RENAL FAILURE [None]
